FAERS Safety Report 10970327 (Version 2)
Quarter: 2015Q3

REPORT INFORMATION
  Report Type: Spontaneous
  Country: IT (occurrence: IT)
  Receive Date: 20150331
  Receipt Date: 20150810
  Transmission Date: 20151125
  Serious: Yes (Hospitalization)
  Sender: FDA-Public Use
  Company Number: IT-PFIZER INC-2015108547

PATIENT
  Age: 13 Year
  Sex: Female

DRUGS (1)
  1. ZOLOFT [Suspect]
     Active Substance: SERTRALINE HYDROCHLORIDE
     Dosage: 13 DF, TOTAL
     Route: 048
     Dates: start: 20150323, end: 20150323

REACTIONS (4)
  - Drug abuse [Recovering/Resolving]
  - Long QT syndrome [Recovering/Resolving]
  - Seizure [Recovering/Resolving]
  - Sinus tachycardia [Recovering/Resolving]

NARRATIVE: CASE EVENT DATE: 20150323
